FAERS Safety Report 23753634 (Version 1)
Quarter: 2024Q2

REPORT INFORMATION
  Report Type: Spontaneous
  Country: US (occurrence: US)
  Receive Date: 20240417
  Receipt Date: 20240417
  Transmission Date: 20240716
  Serious: No
  Sender: FDA-Public Use
  Company Number: US-Calliditas-2024CAL00565

PATIENT
  Age: 27 Year
  Sex: Female

DRUGS (1)
  1. TARPEYO [Suspect]
     Active Substance: BUDESONIDE
     Indication: IgA nephropathy
     Route: 048
     Dates: start: 20240228

REACTIONS (9)
  - Seborrhoea [Unknown]
  - Seborrhoea [Unknown]
  - Acne [Unknown]
  - Joint swelling [Unknown]
  - Joint swelling [Unknown]
  - Weight fluctuation [Unknown]
  - Fluid retention [Unknown]
  - Fatigue [Unknown]
  - Hypertension [Unknown]
